FAERS Safety Report 21251964 (Version 1)
Quarter: 2022Q3

REPORT INFORMATION
  Report Type: Spontaneous
  Country: CN (occurrence: CN)
  Receive Date: 20220825
  Receipt Date: 20220825
  Transmission Date: 20221026
  Serious: Yes (Hospitalization, Disabling, Other)
  Sender: FDA-Public Use
  Company Number: CN-NOVARTISPH-NVSC2022CN189407

PATIENT
  Age: 65 Year
  Sex: Male
  Weight: 60 kg

DRUGS (3)
  1. TISLELIZUMAB [Suspect]
     Active Substance: TISLELIZUMAB
     Indication: Lung neoplasm malignant
     Dosage: 200 MG
     Route: 041
     Dates: start: 20220718, end: 20220718
  2. PACLITAXEL [Suspect]
     Active Substance: PACLITAXEL
     Indication: Lung neoplasm malignant
     Dosage: 240 MG
     Route: 041
     Dates: start: 20220713, end: 20220713
  3. CARBOPLATIN [Suspect]
     Active Substance: CARBOPLATIN
     Indication: Lung neoplasm malignant
     Dosage: 0.45 G
     Route: 041
     Dates: start: 20220714, end: 20220714

REACTIONS (1)
  - Laryngeal necrosis [Recovering/Resolving]

NARRATIVE: CASE EVENT DATE: 20220723
